FAERS Safety Report 9729861 (Version 1)
Quarter: 2013Q4

REPORT INFORMATION
  Report Type: Spontaneous
  Country: DE (occurrence: DE)
  Receive Date: 20131204
  Receipt Date: 20131204
  Transmission Date: 20140711
  Serious: Yes (Other)
  Sender: FDA-Public Use
  Company Number: DE-ASTRAZENECA-2013SE87768

PATIENT
  Age: 12152 Day
  Sex: Female
  Weight: 42.8 kg

DRUGS (1)
  1. SEROQUEL PROLONG [Suspect]
     Indication: DEPRESSION
     Route: 048
     Dates: start: 201306, end: 20131012

REACTIONS (2)
  - Exposure during pregnancy [Unknown]
  - Abortion incomplete [Recovered/Resolved]
